FAERS Safety Report 10926360 (Version 1)
Quarter: 2015Q1

REPORT INFORMATION
  Report Type: Spontaneous
  Country: US (occurrence: None)
  Receive Date: 20150316
  Receipt Date: 20150316
  Transmission Date: 20150721
  Serious: Yes (Other)
  Sender: FDA-Public Use
  Company Number: None

PATIENT
  Age: 70 Year
  Sex: Male
  Weight: 69 kg

DRUGS (1)
  1. AMLODIPINE 10MG MYLAN [Suspect]
     Active Substance: AMLODIPINE BESYLATE
     Indication: HYPERTENSION
     Dates: start: 20150220, end: 20150221

REACTIONS (3)
  - Abdominal pain [None]
  - Lip swelling [None]
  - Dizziness [None]

NARRATIVE: CASE EVENT DATE: 20150221
